FAERS Safety Report 14311572 (Version 1)
Quarter: 2017Q4

REPORT INFORMATION
  Report Type: Spontaneous
  Country: TR (occurrence: TR)
  Receive Date: 20171221
  Receipt Date: 20171221
  Transmission Date: 20180321
  Serious: Yes (Death, Life-Threatening, Hospitalization, Congenital Anomaly, Other)
  Sender: FDA-Public Use
  Company Number: TR-CIPLA LTD.-2017TR23287

PATIENT

DRUGS (3)
  1. MONTELUKAST SODIUM. [Suspect]
     Active Substance: MONTELUKAST SODIUM
     Dosage: UNK
     Route: 064
  2. BECLOMETHASONE DIPROPIONATE/FORMOTEROL FUMARATE DIHYDRATE [Suspect]
     Active Substance: BECLOMETHASONE DIPROPIONATE\FORMOTEROL FUMARATE
     Dosage: UNK
     Route: 064
  3. DESLORATADINE. [Suspect]
     Active Substance: DESLORATADINE
     Dosage: UNK
     Route: 064

REACTIONS (16)
  - Aplasia cutis congenita [Unknown]
  - Enlarged clitoris [None]
  - Maternal drugs affecting foetus [None]
  - Respiratory distress [Unknown]
  - Adrenogenital syndrome [Unknown]
  - Duodenal atresia [Unknown]
  - Premature baby [Unknown]
  - Hypospadias [None]
  - Dysmorphism [Unknown]
  - Foetal exposure during pregnancy [Unknown]
  - Pulmonary haemorrhage [Fatal]
  - Ear malformation [Unknown]
  - Low birth weight baby [Unknown]
  - Disorder of sex development [Unknown]
  - Barth syndrome [Unknown]
  - Vulval disorder [None]
